FAERS Safety Report 8506586 (Version 4)
Quarter: 2013Q1

REPORT INFORMATION
  Report Type: Spontaneous
  Country: US (occurrence: US)
  Receive Date: 20120412
  Receipt Date: 20130315
  Transmission Date: 20140127
  Serious: Yes (Other)
  Sender: FDA-Public Use
  Company Number: US-PFIZER INC-2012088524

PATIENT
  Age: 62 Year
  Sex: Female
  Weight: 60.3 kg

DRUGS (3)
  1. LIPITOR [Suspect]
     Indication: BLOOD CHOLESTEROL INCREASED
     Dosage: UNK
     Route: 048
     Dates: start: 2009
  2. LIPITOR [Suspect]
     Dosage: UNK
     Route: 048
  3. LIPITOR [Suspect]
     Dosage: 20 MG, 1X/DAY
     Route: 048

REACTIONS (7)
  - Drug ineffective [Unknown]
  - Arterial occlusive disease [Unknown]
  - Arteriosclerosis [Unknown]
  - Coronary artery occlusion [Unknown]
  - Expired drug administered [Unknown]
  - Blood cholesterol increased [Unknown]
  - Counterfeit drug administered [Unknown]
